FAERS Safety Report 11128060 (Version 1)
Quarter: 2015Q2

REPORT INFORMATION
  Report Type: Spontaneous
  Country: US (occurrence: None)
  Receive Date: 20150520
  Receipt Date: 20150520
  Transmission Date: 20150821
  Serious: No
  Sender: FDA-Public Use
  Company Number: None

PATIENT
  Age: 43 Year
  Sex: Female
  Weight: 58.97 kg

DRUGS (2)
  1. B12 SUBLINGUAL VITAMIN [Concomitant]
  2. CEPHALEXIN. [Suspect]
     Active Substance: CEPHALEXIN
     Indication: FOOT OPERATION
     Route: 048

REACTIONS (1)
  - Menstruation irregular [None]
